FAERS Safety Report 14426252 (Version 1)
Quarter: 2018Q1

REPORT INFORMATION
  Report Type: Spontaneous
  Country: US (occurrence: US)
  Receive Date: 20180123
  Receipt Date: 20180123
  Transmission Date: 20180509
  Serious: No
  Sender: FDA-Public Use
  Company Number: US-ROCHE-2001602

PATIENT
  Age: 31 Year
  Sex: Female

DRUGS (1)
  1. OCREVUS [Suspect]
     Active Substance: OCRELIZUMAB
     Indication: MULTIPLE SCLEROSIS
     Dosage: UNKNOWN
     Route: 065
     Dates: start: 20170926

REACTIONS (4)
  - Urticaria [Unknown]
  - Rhinorrhoea [Unknown]
  - Throat irritation [Unknown]
  - Rash erythematous [Unknown]

NARRATIVE: CASE EVENT DATE: 20170926
